FAERS Safety Report 9800947 (Version 2)
Quarter: 2014Q1

REPORT INFORMATION
  Report Type: Spontaneous
  Country: FR (occurrence: FR)
  Receive Date: 20140107
  Receipt Date: 20140228
  Transmission Date: 20141002
  Serious: Yes (Hospitalization)
  Sender: FDA-Public Use
  Company Number: FR-JNJFOC-20140101222

PATIENT
  Age: 70 Year
  Sex: Female
  Weight: 90 kg

DRUGS (14)
  1. RISPERDAL [Suspect]
     Indication: PSYCHOTIC DISORDER
     Route: 048
     Dates: start: 20131125, end: 20131128
  2. COAPROVEL [Concomitant]
     Route: 048
     Dates: start: 20131025
  3. KARDEGIC [Concomitant]
     Route: 048
  4. INEXIUM [Concomitant]
     Route: 048
  5. CRESTOR [Concomitant]
     Route: 048
  6. HYPERIUM [Concomitant]
     Route: 048
  7. EUPRESSYL [Concomitant]
     Route: 048
  8. IKOREL [Concomitant]
     Dosage: 10 UNSPECIFIED UNITS
     Route: 048
  9. NOVOMIX [Concomitant]
     Route: 058
  10. STAGID [Concomitant]
     Dosage: 700 UNSPECIFIED UNITS
     Route: 058
  11. PLAVIX [Concomitant]
     Dosage: 75 UNSPECIFIED UNITS
     Route: 065
     Dates: start: 20131205
  12. BISOPROLOL [Concomitant]
     Dosage: 5 UNSPECIFIED UNITS
     Route: 048
     Dates: start: 20131205
  13. DEPAMIDE [Concomitant]
     Route: 065
     Dates: start: 20131205
  14. LASILIX [Concomitant]
     Route: 065
     Dates: start: 20131205

REACTIONS (2)
  - Angina pectoris [Recovered/Resolved]
  - Acute coronary syndrome [Unknown]
